FAERS Safety Report 21209326 (Version 3)
Quarter: 2022Q4

REPORT INFORMATION
  Report Type: Spontaneous
  Country: US (occurrence: US)
  Receive Date: 20220813
  Receipt Date: 20221216
  Transmission Date: 20230113
  Serious: No
  Sender: FDA-Public Use
  Company Number: US-NOVARTISTESTPH-NVSC2022US183460

PATIENT

DRUGS (1)
  1. VOLTAREN [Suspect]
     Active Substance: DICLOFENAC SODIUM
     Indication: Epicondylitis
     Dosage: UNK
     Route: 065
     Dates: start: 2022

REACTIONS (6)
  - Burning sensation [Unknown]
  - Rash [Unknown]
  - Insomnia [Unknown]
  - Pruritus [Unknown]
  - Photosensitivity reaction [Unknown]
  - Product use in unapproved indication [Unknown]

NARRATIVE: CASE EVENT DATE: 20220101
